FAERS Safety Report 8179357-4 (Version None)
Quarter: 2012Q1

REPORT INFORMATION
  Report Type: 
  Country: None (occurrence: None)
  Receive Date: 20120302
  Receipt Date: 20120221
  Transmission Date: 20120608
  Serious: Yes (Other)
  Sender: FDA-Public Use
  Company Number: SE-JNJFOC-20120212028

PATIENT
  Age: 41 Year
  Sex: Female

DRUGS (9)
  1. TOPAMAX [Suspect]
     Dosage: 50 MG IN THE MORNING AND 50 MG IN THE EVENING
     Route: 048
  2. MIANSERIN [Suspect]
     Indication: PRODUCT USED FOR UNKNOWN INDICATION
     Route: 065
  3. SEROQUEL [Concomitant]
     Route: 065
  4. TOPAMAX [Suspect]
     Indication: DEPRESSION
     Route: 048
  5. TOPAMAX [Suspect]
     Dosage: 50 MG IN THE MORNING AND 50 MG IN THE EVENING
     Route: 048
  6. TOPAMAX [Suspect]
     Indication: BRAIN INJURY
     Route: 048
  7. TOPAMAX [Suspect]
     Dosage: 50 MG IN THE MORNING AND 25 MG IN THE EVENING
     Route: 048
  8. TOPAMAX [Suspect]
     Dosage: 50 MG IN THE MORNING AND 25 MG IN THE EVENING
     Route: 048
  9. DEPO-PROVERA [Concomitant]
     Route: 065

REACTIONS (2)
  - INTESTINAL HAEMORRHAGE [None]
  - THROMBOCYTOPENIA [None]
